FAERS Safety Report 8582990-9 (Version None)
Quarter: 2012Q3

REPORT INFORMATION
  Report Type: 
  Country: None (occurrence: None)
  Receive Date: 20120809
  Receipt Date: 20120802
  Transmission Date: 20120928
  Serious: No
  Sender: FDA-Public Use
  Company Number: JP-PFIZER INC-2012163488

PATIENT
  Age: 53 Year
  Sex: Male

DRUGS (3)
  1. TRUSOPT [Suspect]
     Indication: GLAUCOMA
     Dosage: 3 GTT, 1X/DAY
     Route: 047
  2. ZOLPIDEM [Suspect]
     Dosage: UNK
     Route: 048
  3. LATANOPROST [Suspect]
     Indication: GLAUCOMA
     Dosage: 1 GTT, 1X/DAY
     Route: 047
     Dates: start: 20120601

REACTIONS (1)
  - SPUTUM DISCOLOURED [None]
